FAERS Safety Report 13413786 (Version 1)
Quarter: 2017Q2

REPORT INFORMATION
  Report Type: Spontaneous
  Country: US (occurrence: US)
  Receive Date: 20170407
  Receipt Date: 20170407
  Transmission Date: 20170830
  Serious: No
  Sender: FDA-Public Use
  Company Number: US-TEVA-749017ACC

PATIENT
  Age: 28 Year
  Sex: Female
  Weight: 65.83 kg

DRUGS (2)
  1. PLAN B ONE-STEP [Suspect]
     Active Substance: LEVONORGESTREL
     Indication: POST COITAL CONTRACEPTION
  2. AMOXICILLIN. [Concomitant]
     Active Substance: AMOXICILLIN
     Indication: SINUSITIS

REACTIONS (10)
  - Breast pain [Recovered/Resolved]
  - Menstruation delayed [Recovered/Resolved]
  - Vaginal haemorrhage [Recovered/Resolved]
  - Back pain [Recovered/Resolved]
  - Migraine [Recovered/Resolved]
  - Wrong technique in product usage process [Unknown]
  - Vomiting [Recovered/Resolved]
  - Menstruation irregular [Recovered/Resolved]
  - Headache [Recovered/Resolved]
  - Intentional product misuse [Unknown]

NARRATIVE: CASE EVENT DATE: 20170306
